FAERS Safety Report 18991413 (Version 2)
Quarter: 2021Q3

REPORT INFORMATION
  Report Type: Spontaneous
  Country: LT (occurrence: LT)
  Receive Date: 20210310
  Receipt Date: 20210831
  Transmission Date: 20211014
  Serious: Yes (Other)
  Sender: FDA-Public Use
  Company Number: LT-UCBSA-2021010431

PATIENT
  Sex: Female

DRUGS (21)
  1. DEPAKINE [VALPROIC ACID] [Suspect]
     Active Substance: VALPROIC ACID
     Indication: EPILEPSY
     Dosage: DOSE DECREASED
  2. NITRAZEPAM [Suspect]
     Active Substance: NITRAZEPAM
     Dosage: UNK
  3. METHYLPREDNISOLONE. [Suspect]
     Active Substance: METHYLPREDNISOLONE
     Dosage: PULSE
     Route: 042
  4. LEVETIRACETAM. [Suspect]
     Active Substance: LEVETIRACETAM
     Indication: EPILEPSY
  5. SULTIAME [Suspect]
     Active Substance: SULTHIAME
     Dosage: UNK
  6. CLONAZEPAM. [Suspect]
     Active Substance: CLONAZEPAM
     Indication: PARTIAL SEIZURES
     Dosage: UNK
  7. TOPAMAX [Suspect]
     Active Substance: TOPIRAMATE
     Indication: PARTIAL SEIZURES
     Dosage: DECREASE OF DOSE
     Route: 048
  8. METHYLPREDNISOLONE. [Suspect]
     Active Substance: METHYLPREDNISOLONE
     Indication: PARTIAL SEIZURES
     Dosage: UNK
  9. SULTIAME [Suspect]
     Active Substance: SULTHIAME
     Indication: EPILEPSY
     Dosage: UNK
  10. VIGABATRIN. [Suspect]
     Active Substance: VIGABATRIN
     Indication: EPILEPSY
     Dosage: UNK
  11. VIGABATRIN. [Suspect]
     Active Substance: VIGABATRIN
     Dosage: UNK
  12. CARBAMAZEPINE. [Suspect]
     Active Substance: CARBAMAZEPINE
     Indication: EPILEPSY
     Dosage: UNK
  13. ETHOSUXIMIDE. [Suspect]
     Active Substance: ETHOSUXIMIDE
     Indication: PARTIAL SEIZURES
  14. TOPAMAX [Suspect]
     Active Substance: TOPIRAMATE
     Dosage: UNK
     Route: 048
  15. DIACARB [Suspect]
     Active Substance: ACETAZOLAMIDE
     Indication: EPILEPSY
     Dosage: DOSE DECREASED
  16. CLOBAZAM. [Suspect]
     Active Substance: CLOBAZAM
     Indication: EPILEPSY
     Dosage: UNK
  17. DEPAKINE [VALPROIC ACID] [Suspect]
     Active Substance: VALPROIC ACID
     Dosage: MAXIMUM DOSE
  18. DIACARB [Suspect]
     Active Substance: ACETAZOLAMIDE
     Dosage: UNK
  19. NITRAZEPAM [Suspect]
     Active Substance: NITRAZEPAM
     Indication: EPILEPSY
     Dosage: UNK
  20. LEVETIRACETAM. [Suspect]
     Active Substance: LEVETIRACETAM
     Indication: PARTIAL SEIZURES
     Dosage: UNK
  21. CLONAZEPAM. [Suspect]
     Active Substance: CLONAZEPAM
     Indication: EPILEPSY
     Dosage: UNK

REACTIONS (2)
  - Epilepsy [Recovered/Resolved]
  - Drug ineffective [Unknown]
